FAERS Safety Report 9149340 (Version 1)
Quarter: 2013Q1

REPORT INFORMATION
  Report Type: Spontaneous
  Country: DE (occurrence: None)
  Receive Date: 20130131
  Receipt Date: 20130131
  Transmission Date: 20140127
  Serious: Yes (Congenital Anomaly, Other)
  Sender: FDA-Public Use
  Company Number: GER/GER/13/01027657

PATIENT
  Sex: Male
  Weight: 2.73 kg

DRUGS (2)
  1. VENLAFAXINE [Suspect]
     Indication: PRODUCT USED FOR UNKNOWN INDICATION
     Dosage: 1 IN 1 D
     Route: 064
  2. OPIPRAMOL [Suspect]
     Indication: PRODUCT USED FOR UNKNOWN INDICATION
     Dosage: 1 IN 1 D
     Route: 064

REACTIONS (5)
  - Polydactyly [None]
  - Neonatal respiratory distress syndrome [None]
  - Apnoea neonatal [None]
  - Maternal drugs affecting foetus [None]
  - Oxygen saturation decreased [None]
